FAERS Safety Report 25517620 (Version 1)
Quarter: 2025Q3

REPORT INFORMATION
  Report Type: Spontaneous
  Country: CN (occurrence: CN)
  Receive Date: 20250704
  Receipt Date: 20250704
  Transmission Date: 20251020
  Serious: Yes (Other)
  Sender: SANOFI AVENTIS
  Company Number: CN-SA-2025SA184215

PATIENT
  Age: 82 Year
  Sex: Female
  Weight: 60 kg

DRUGS (4)
  1. CLOPIDOGREL BISULFATE [Suspect]
     Active Substance: CLOPIDOGREL BISULFATE
     Indication: Platelet aggregation abnormal
     Dosage: 75 MG, QD
     Route: 048
     Dates: start: 20250605, end: 20250609
  2. CLOPIDOGREL BISULFATE [Suspect]
     Active Substance: CLOPIDOGREL BISULFATE
     Indication: Coronary artery disease
  3. ASPIRIN [Suspect]
     Active Substance: ASPIRIN
     Indication: Platelet aggregation abnormal
     Dosage: 100 MG, QD
     Route: 048
     Dates: start: 20250605, end: 20250609
  4. ASPIRIN [Suspect]
     Active Substance: ASPIRIN
     Indication: Coronary artery disease

REACTIONS (1)
  - Regurgitation [Recovered/Resolved]

NARRATIVE: CASE EVENT DATE: 20250607
